FAERS Safety Report 15822879 (Version 1)
Quarter: 2019Q1

REPORT INFORMATION
  Report Type: Spontaneous
  Country: CA (occurrence: CA)
  Receive Date: 20190114
  Receipt Date: 20190114
  Transmission Date: 20190417
  Serious: Yes (Hospitalization)
  Sender: FDA-Public Use
  Company Number: CA-TARO PHARMACEUTICALS USA.,INC-2019SUN00006

PATIENT
  Age: 21 Year
  Sex: Female

DRUGS (6)
  1. PHENYTOIN. [Suspect]
     Active Substance: PHENYTOIN
     Indication: POST-ANOXIC MYOCLONUS
     Dosage: 20 MG/KG AT 50 MG/MIN
     Route: 042
  2. VALPROIC ACID. [Concomitant]
     Active Substance: VALPROIC ACID
     Indication: POST-ANOXIC MYOCLONUS
     Dosage: 500 MG/D
     Route: 065
  3. PHENYTOIN SODIUM. [Suspect]
     Active Substance: PHENYTOIN SODIUM
     Dosage: 250 MG, PO/NG BID
     Route: 048
  4. PROPOFOL. [Concomitant]
     Active Substance: PROPOFOL
     Indication: POST-ANOXIC MYOCLONUS
     Dosage: 2 MG/KG/H X 6 H
     Route: 042
  5. PHENYTOIN SODIUM. [Suspect]
     Active Substance: PHENYTOIN SODIUM
     Indication: POST-ANOXIC MYOCLONUS
     Dosage: 600 MG/D
     Route: 048
  6. PROPOFOL. [Concomitant]
     Active Substance: PROPOFOL
     Dosage: 5 MG/KG/H X 70 MINUTES
     Route: 042

REACTIONS (1)
  - Myoclonic epilepsy [Recovered/Resolved]
